FAERS Safety Report 14195169 (Version 1)
Quarter: 2017Q4

REPORT INFORMATION
  Report Type: Spontaneous
  Country: US (occurrence: US)
  Receive Date: 20171116
  Receipt Date: 20171116
  Transmission Date: 20180321
  Serious: Yes (Hospitalization, Other)
  Sender: FDA-Public Use
  Company Number: US-PFIZER INC-2017489049

PATIENT
  Age: 59 Year
  Sex: Male

DRUGS (1)
  1. XALKORI [Suspect]
     Active Substance: CRIZOTINIB
     Indication: BREAST DYSPLASIA
     Dosage: 250 MG, 2X/DAY
     Route: 048
     Dates: start: 201710

REACTIONS (2)
  - Product use in unapproved indication [Unknown]
  - Urinary retention [Unknown]
